FAERS Safety Report 18033840 (Version 4)
Quarter: 2022Q1

REPORT INFORMATION
  Report Type: Report from Study
  Country: US (occurrence: US)
  Receive Date: 20200716
  Receipt Date: 20220325
  Transmission Date: 20220424
  Serious: Yes (Hospitalization, Other)
  Sender: FDA-Public Use
  Company Number: US-SHIRE-US202022312

PATIENT
  Sex: Female
  Weight: 67 kg

DRUGS (42)
  1. .ALPHA.1-PROTEINASE INHIBITOR HUMAN [Suspect]
     Active Substance: .ALPHA.1-PROTEINASE INHIBITOR HUMAN
     Indication: Alpha-1 antitrypsin deficiency
     Dosage: 60 MILLIGRAM/KILOGRAM, 1/WEEK
     Route: 042
     Dates: start: 20110616
  2. .ALPHA.1-PROTEINASE INHIBITOR HUMAN [Suspect]
     Active Substance: .ALPHA.1-PROTEINASE INHIBITOR HUMAN
     Indication: Alpha-1 antitrypsin deficiency
     Dosage: 60 MILLIGRAM/KILOGRAM, 1/WEEK
     Route: 042
     Dates: start: 20110616
  3. .ALPHA.1-PROTEINASE INHIBITOR HUMAN [Suspect]
     Active Substance: .ALPHA.1-PROTEINASE INHIBITOR HUMAN
     Dosage: 3830 MILLIGRAM, 1/WEEK
     Route: 042
     Dates: start: 20110616
  4. .ALPHA.1-PROTEINASE INHIBITOR HUMAN [Suspect]
     Active Substance: .ALPHA.1-PROTEINASE INHIBITOR HUMAN
     Dosage: 3830 MILLIGRAM, 1/WEEK
     Route: 042
     Dates: start: 20110616
  5. SODIUM CHLORIDE [Concomitant]
     Active Substance: SODIUM CHLORIDE
     Indication: Product used for unknown indication
  6. EPINEPHRINE [Concomitant]
     Active Substance: EPINEPHRINE
     Indication: Product used for unknown indication
  7. LMX 4 [Concomitant]
     Indication: Product used for unknown indication
  8. BUSPIRONE [Concomitant]
     Active Substance: BUSPIRONE HYDROCHLORIDE
     Indication: Product used for unknown indication
  9. LIPITOR [Concomitant]
     Active Substance: ATORVASTATIN CALCIUM
     Indication: Product used for unknown indication
  10. QVAR [Concomitant]
     Active Substance: BECLOMETHASONE DIPROPIONATE
     Indication: Product used for unknown indication
  11. IBUPROFEN [Concomitant]
     Active Substance: IBUPROFEN
     Indication: Product used for unknown indication
  12. OMEPRAZOLE [Concomitant]
     Active Substance: OMEPRAZOLE
     Indication: Product used for unknown indication
  13. SYMBICORT [Concomitant]
     Active Substance: BUDESONIDE\FORMOTEROL FUMARATE DIHYDRATE
     Indication: Product used for unknown indication
  14. CALCIUM [Concomitant]
     Active Substance: CALCIUM
     Indication: Product used for unknown indication
  15. ASPIRIN [Concomitant]
     Active Substance: ASPIRIN
     Indication: Product used for unknown indication
  16. VITAMIN 15 [Concomitant]
     Indication: Product used for unknown indication
  17. XOPENEX [Concomitant]
     Active Substance: LEVALBUTEROL HYDROCHLORIDE
     Indication: Product used for unknown indication
  18. PENICILLIN [Concomitant]
     Active Substance: PENICILLIN
     Indication: Product used for unknown indication
  19. LEVAQUIN [Concomitant]
     Active Substance: LEVOFLOXACIN
     Indication: Product used for unknown indication
  20. NYSTATIN [Concomitant]
     Active Substance: NYSTATIN
  21. METFORMIN [Concomitant]
     Active Substance: METFORMIN HYDROCHLORIDE
  22. DIOVAN [Concomitant]
     Active Substance: VALSARTAN
  23. ALPRAZOLAM [Concomitant]
     Active Substance: ALPRAZOLAM
  24. FISH OIL [Concomitant]
     Active Substance: FISH OIL
  25. ALBUTEROL SULFATE [Concomitant]
     Active Substance: ALBUTEROL SULFATE
  26. ESTRACE [Concomitant]
     Active Substance: ESTRADIOL
  27. ALEVE [Concomitant]
     Active Substance: NAPROXEN SODIUM
  28. CRESTOR [Concomitant]
     Active Substance: ROSUVASTATIN CALCIUM
  29. EFFEXOR [Concomitant]
     Active Substance: VENLAFAXINE HYDROCHLORIDE
  30. LUNESTA [Concomitant]
     Active Substance: ESZOPICLONE
  31. AMBIEN [Concomitant]
     Active Substance: ZOLPIDEM TARTRATE
  32. VITAMINS [Concomitant]
     Active Substance: VITAMINS
  33. MACRODANTIN [Concomitant]
     Active Substance: NITROFURANTOIN
  34. BUTALB/ACET/CAFFEINE [Concomitant]
  35. ATORVASTATIN CALCIUM [Concomitant]
     Active Substance: ATORVASTATIN CALCIUM
  36. LISINOPRIL [Concomitant]
     Active Substance: LISINOPRIL
  37. SPIRIVA RESPIMAT [Concomitant]
     Active Substance: TIOTROPIUM BROMIDE
  38. LEVALBUTEROL [Concomitant]
     Active Substance: LEVALBUTEROL
  39. VITAMIN D3 [Concomitant]
     Active Substance: CHOLECALCIFEROL
  40. MODERNA COVID-19 VACCINE [Concomitant]
     Active Substance: ELASOMERAN
  41. THERA-M [Concomitant]
  42. TESSALON [Concomitant]
     Active Substance: BENZONATATE

REACTIONS (4)
  - Pneumonia bacterial [Unknown]
  - Urinary tract infection [Unknown]
  - Asthma [Unknown]
  - Product dose omission issue [Unknown]
